FAERS Safety Report 25530659 (Version 3)
Quarter: 2025Q3

REPORT INFORMATION
  Report Type: Spontaneous
  Country: CA (occurrence: CA)
  Receive Date: 20250708
  Receipt Date: 20250715
  Transmission Date: 20251020
  Serious: Yes (Other)
  Sender: PFIZER
  Company Number: CA-PFIZER INC-202500135939

PATIENT
  Age: 69 Year
  Sex: Female

DRUGS (6)
  1. IXIFI [Suspect]
     Active Substance: INFLIXIMAB-QBTX
     Indication: Colitis ulcerative
     Dates: start: 20250523
  2. IXIFI [Suspect]
     Active Substance: INFLIXIMAB-QBTX
     Route: 042
     Dates: start: 20250627
  3. BACTRIM [Concomitant]
     Active Substance: SULFAMETHOXAZOLE\TRIMETHOPRIM
  4. HYDROCHLOROTHIAZIDE [Concomitant]
     Active Substance: HYDROCHLOROTHIAZIDE
  5. METOPROLOL [Concomitant]
     Active Substance: METOPROLOL
  6. PREDNISONE [Concomitant]
     Active Substance: PREDNISONE

REACTIONS (20)
  - Intestinal haemorrhage [Unknown]
  - Colitis [Unknown]
  - Asthenia [Unknown]
  - Decreased appetite [Unknown]
  - Gingival bleeding [Unknown]
  - Conjunctival haemorrhage [Unknown]
  - Muscle spasms [Unknown]
  - Nodule [Unknown]
  - Inflammation [Unknown]
  - Myalgia [Unknown]
  - Arthralgia [Unknown]
  - Gait disturbance [Unknown]
  - Sleep disorder [Unknown]
  - Loss of personal independence in daily activities [Unknown]
  - Tendon pain [Unknown]
  - Pain in extremity [Unknown]
  - Peripheral swelling [Unknown]
  - Hypervolaemia [Unknown]
  - Condition aggravated [Unknown]
  - Drug hypersensitivity [Unknown]
